FAERS Safety Report 15862865 (Version 1)
Quarter: 2019Q1

REPORT INFORMATION
  Report Type: Spontaneous
  Country: JP (occurrence: JP)
  Receive Date: 20190124
  Receipt Date: 20190124
  Transmission Date: 20190417
  Serious: Yes (Death)
  Sender: FDA-Public Use
  Company Number: JP-CELGENEUS-JPN-20190106587

PATIENT
  Age: 67 Year
  Sex: Male
  Weight: 54.7 kg

DRUGS (8)
  1. ABRAXANE [Suspect]
     Active Substance: PACLITAXEL
     Indication: LUNG CANCER METASTATIC
     Dosage: 100 MILLIGRAM
     Route: 041
     Dates: start: 20140324, end: 20140331
  2. CARBOPLATIN. [Suspect]
     Active Substance: CARBOPLATIN
     Indication: LUNG CANCER METASTATIC
     Dosage: 459 MILLIGRAM
     Route: 041
     Dates: start: 20140324, end: 20140324
  3. ZOSYN [Concomitant]
     Active Substance: PIPERACILLIN SODIUM\TAZOBACTAM SODIUM
     Indication: PRODUCT USED FOR UNKNOWN INDICATION
     Dosage: 13.5 GRAM
     Route: 065
     Dates: start: 20140401, end: 20140410
  4. LORAZEPAM. [Concomitant]
     Active Substance: LORAZEPAM
     Indication: LUNG CANCER METASTATIC
     Dosage: 1.5 MILLIGRAM
     Route: 048
  5. MAGMITT [Concomitant]
     Active Substance: MAGNESIUM OXIDE
     Indication: LUNG CANCER METASTATIC
     Dosage: 750 MILLIGRAM
     Route: 048
  6. PREGABALIN. [Concomitant]
     Active Substance: PREGABALIN
     Indication: LUNG CANCER METASTATIC
     Dosage: 150 MILLIGRAM
     Route: 048
  7. OXYCONTIN [Concomitant]
     Active Substance: OXYCODONE HYDROCHLORIDE
     Indication: LUNG CANCER METASTATIC
     Dosage: 50 MILLIGRAM
     Route: 048
  8. ACETAMINOPHEN. [Concomitant]
     Active Substance: ACETAMINOPHEN
     Indication: LUNG CANCER METASTATIC
     Route: 048

REACTIONS (1)
  - Pneumonitis [Fatal]

NARRATIVE: CASE EVENT DATE: 20140401
